FAERS Safety Report 12803172 (Version 1)
Quarter: 2016Q4

REPORT INFORMATION
  Report Type: Spontaneous
  Country: FR (occurrence: FR)
  Receive Date: 20161003
  Receipt Date: 20161003
  Transmission Date: 20170207
  Serious: Yes (Other)
  Sender: FDA-Public Use
  Company Number: FR-JNJFOC-20160901145

PATIENT
  Age: 93 Year
  Sex: Male

DRUGS (4)
  1. ZYTIGA [Suspect]
     Active Substance: ABIRATERONE ACETATE
     Indication: PROSTATE CANCER METASTATIC
     Route: 048
     Dates: start: 20160401, end: 20160418
  2. TAHOR [Concomitant]
     Active Substance: ATORVASTATIN CALCIUM
     Route: 065
  3. XTANDI [Concomitant]
     Active Substance: ENZALUTAMIDE
     Route: 065
  4. KARDEGIC [Concomitant]
     Active Substance: ASPIRIN LYSINE
     Route: 065

REACTIONS (4)
  - Restless legs syndrome [Recovered/Resolved]
  - Pain [Unknown]
  - Insomnia [Recovered/Resolved]
  - Off label use [Unknown]

NARRATIVE: CASE EVENT DATE: 201604
